FAERS Safety Report 6099699-6 (Version None)
Quarter: 2009Q1

REPORT INFORMATION
  Report Type: 
  Country: None (occurrence: None)
  Receive Date: 20090303
  Receipt Date: 20090220
  Transmission Date: 20090719
  Serious: Yes (Other)
  Sender: FDA-Public Use
  Company Number: JP-BRISTOL-MYERS SQUIBB COMPANY-14525059

PATIENT
  Age: 51 Year
  Sex: Female

DRUGS (10)
  1. ABILIFY [Suspect]
     Indication: SCHIZOPHRENIA
     Dosage: REGIMEN#3 30MG,THEN TITRATED DOWN AND END AUG INCREASED AND 11DAY OF HOSP-6MG, LASTLY#7- 18MG
     Route: 048
  2. DANTROLENE SODIUM [Concomitant]
  3. TRIHEXYPHENIDYL HCL [Concomitant]
  4. CLONAZEPAM [Concomitant]
  5. CARBAMAZEPINE [Concomitant]
  6. ZOTEPINE [Concomitant]
  7. DIAZEPAM [Concomitant]
  8. QUETIAPINE FUMARATE [Concomitant]
  9. FLUNITRAZEPAM [Concomitant]
  10. GABAPENTIN [Concomitant]

REACTIONS (4)
  - DRUG INEFFECTIVE [None]
  - HALLUCINATION, VISUAL [None]
  - PERSECUTORY DELUSION [None]
  - PSYCHIATRIC SYMPTOM [None]
